FAERS Safety Report 4346475-8 (Version None)
Quarter: 2004Q2

REPORT INFORMATION
  Report Type: 
  Country: None (occurrence: None)
  Receive Date: 20040426
  Receipt Date: 20030610
  Transmission Date: 20050107
  Serious: Yes (Other)
  Sender: FDA-Public Use
  Company Number: US-BRISTOL-MYERS SQUIBB COMPANY-12298410

PATIENT
  Age: 6 Year
  Sex: Male
  Weight: 33 kg

DRUGS (1)
  1. PARAPLATIN [Suspect]
     Indication: OPTIC TRACT GLIOMA
     Dosage: WEEKLY FOR 12 WEEKS @ ^175MG/M^3^ 1ST DOSE ON 03APR01
     Route: 042
     Dates: start: 20020430, end: 20020430

REACTIONS (1)
  - ANAPHYLACTIC REACTION [None]
